FAERS Safety Report 14836496 (Version 8)
Quarter: 2022Q2

REPORT INFORMATION
  Report Type: Report from Study
  Country: JP (occurrence: JP)
  Receive Date: 20180502
  Receipt Date: 20220523
  Transmission Date: 20220720
  Serious: Yes (Death, Life-Threatening, Disabling, Other)
  Sender: FDA-Public Use
  Company Number: JP-BRISTOL-MYERS SQUIBB COMPANY-BMS-2018-039410

PATIENT
  Age: 65 Year
  Sex: Female
  Weight: 35 kg

DRUGS (1)
  1. OPDIVO [Suspect]
     Active Substance: NIVOLUMAB
     Indication: Gastric cancer
     Route: 041
     Dates: start: 20180417, end: 20180417

REACTIONS (9)
  - Hypoglycaemia [Fatal]
  - Altered state of consciousness [Fatal]
  - Dehydration [Fatal]
  - Hepatic function abnormal [Fatal]
  - Decreased appetite [Not Recovered/Not Resolved]
  - Urinary tract infection [Not Recovered/Not Resolved]
  - Malignant neoplasm progression [Fatal]
  - Staphylococcal sepsis [Not Recovered/Not Resolved]
  - Disseminated intravascular coagulation [Not Recovered/Not Resolved]

NARRATIVE: CASE EVENT DATE: 20180418
